FAERS Safety Report 10247613 (Version 6)
Quarter: 2015Q3

REPORT INFORMATION
  Report Type: Spontaneous
  Country: US (occurrence: US)
  Receive Date: 20140619
  Receipt Date: 20150820
  Transmission Date: 20151125
  Serious: Yes (Disabling, Other)
  Sender: FDA-Public Use
  Company Number: US-009507513-1406USA007347

PATIENT
  Sex: Male
  Weight: 108.84 kg

DRUGS (3)
  1. FINASTERIDE. [Suspect]
     Active Substance: FINASTERIDE
     Indication: ANDROGENETIC ALOPECIA
     Dosage: 5 MG, QD
     Route: 048
     Dates: start: 20100225
  2. PROPECIA [Suspect]
     Active Substance: FINASTERIDE
     Indication: ANDROGENETIC ALOPECIA
     Dosage: 1 MG, QD
     Route: 048
     Dates: start: 199802, end: 20120316
  3. PROSCAR [Suspect]
     Active Substance: FINASTERIDE
     Indication: ANDROGENETIC ALOPECIA
     Dosage: UNK, QD
     Route: 048
     Dates: start: 2000, end: 201201

REACTIONS (44)
  - Sexual dysfunction [Not Recovered/Not Resolved]
  - Ejaculation failure [Not Recovered/Not Resolved]
  - Hypogonadism male [Not Recovered/Not Resolved]
  - Post laminectomy syndrome [Unknown]
  - Arthralgia [Unknown]
  - Thinking abnormal [Not Recovered/Not Resolved]
  - Hand repair operation [Unknown]
  - Urinary straining [Unknown]
  - Laminaplasty [Unknown]
  - Libido decreased [Not Recovered/Not Resolved]
  - Ejaculation disorder [Not Recovered/Not Resolved]
  - Tendon operation [Unknown]
  - Pollakiuria [Unknown]
  - Palpitations [Unknown]
  - Dermal absorption impaired [Unknown]
  - Cognitive disorder [Not Recovered/Not Resolved]
  - Depression [Not Recovered/Not Resolved]
  - Ankle operation [Unknown]
  - Drug administration error [Unknown]
  - Anxiety [Not Recovered/Not Resolved]
  - Burning sensation [Unknown]
  - Liver function test abnormal [Unknown]
  - Polycythaemia [Unknown]
  - Spinal fusion surgery [Unknown]
  - Essential hypertension [Unknown]
  - Hepatitis [Unknown]
  - Paraesthesia [Unknown]
  - Intervertebral disc protrusion [Unknown]
  - Fluid retention [Unknown]
  - Sleep apnoea syndrome [Unknown]
  - Reproductive tract disorder [Not Recovered/Not Resolved]
  - Pain [Not Recovered/Not Resolved]
  - Seizure [Unknown]
  - Erectile dysfunction [Not Recovered/Not Resolved]
  - Hypercholesterolaemia [Unknown]
  - Back pain [Not Recovered/Not Resolved]
  - Pain [Unknown]
  - Radicular pain [Unknown]
  - Disability [Unknown]
  - Hand repair operation [Unknown]
  - Urinary retention [Unknown]
  - Neck pain [Unknown]
  - Treatment noncompliance [Unknown]
  - Accidental overdose [Unknown]

NARRATIVE: CASE EVENT DATE: 200002
